FAERS Safety Report 9216184 (Version 4)
Quarter: 2013Q2

REPORT INFORMATION
  Report Type: Spontaneous
  Country: AU (occurrence: None)
  Receive Date: 20130403
  Receipt Date: 20130522
  Transmission Date: 20140414
  Serious: Yes (Hospitalization)
  Sender: FDA-Public Use
  Company Number: ACO_35084_2013

PATIENT
  Age: 32 Year
  Sex: Female

DRUGS (14)
  1. FAMPRIDINE-SR [Suspect]
     Indication: MULTIPLE SCLEROSIS
     Route: 048
     Dates: start: 20120504, end: 20130518
  2. SYMMETREL (AMANTADINE HYDROCHLORIDE) [Concomitant]
  3. HIPREX (METHENAMINE HIPPURATE) [Concomitant]
  4. TYSABRI (NATALIZUMAB) [Concomitant]
  5. METFORMIN (METFORMIN HYDROCHLORIDE) [Concomitant]
  6. FOLIC ACID (FOLIC ACID) [Concomitant]
  7. VITAMIN D (COLECALCIFEROL) [Concomitant]
  8. FERROGRAD C (FERROUS SULFATE EXSICCATED, SODIUM ASCORBATE) [Concomitant]
  9. VITAMIN E (TOCOPHEROL) [Concomitant]
  10. FISH OIL (FISH OIL) [Concomitant]
  11. CRANBERRY (CRANBERRY) [Concomitant]
  12. ADVIL (MEFENAMIC ACID) [Concomitant]
  13. DITROPAN (OXYBUTYNIN HYDROCHLORIDE) [Concomitant]
  14. LOVAN (FLUOXETINE HYDROCHLORIDE) [Concomitant]

REACTIONS (34)
  - Viral infection [None]
  - Pyrexia [None]
  - Dyspnoea [None]
  - Headache [None]
  - White blood cell count increased [None]
  - Neutrophil count increased [None]
  - Monocyte count increased [None]
  - C-reactive protein increased [None]
  - Blood phosphorus decreased [None]
  - White blood cells urine positive [None]
  - Myalgia [None]
  - Musculoskeletal chest pain [None]
  - Pleuritic pain [None]
  - Epstein-Barr virus test positive [None]
  - Blood chloride increased [None]
  - Pollakiuria [None]
  - Dysuria [None]
  - Protein total decreased [None]
  - Blood uric acid decreased [None]
  - Blood albumin decreased [None]
  - Globulins decreased [None]
  - Haemoglobin decreased [None]
  - Haematocrit decreased [None]
  - Red blood cell count decreased [None]
  - Platelet count decreased [None]
  - Blood bicarbonate decreased [None]
  - Blood glucose decreased [None]
  - Alanine aminotransferase increased [None]
  - Gamma-glutamyltransferase increased [None]
  - Platelet count increased [None]
  - Red blood cell sedimentation rate increased [None]
  - Escherichia test positive [None]
  - Bacteriuria [None]
  - Post procedural complication [None]
